FAERS Safety Report 7611026-9 (Version None)
Quarter: 2011Q3

REPORT INFORMATION
  Report Type: 
  Country: None (occurrence: None)
  Receive Date: 20110715
  Receipt Date: 20110708
  Transmission Date: 20111222
  Serious: Yes (Other)
  Sender: FDA-Public Use
  Company Number: US-JNJFOC-20110704380

PATIENT
  Age: 53 Year
  Sex: Female
  Weight: 56.7 kg

DRUGS (5)
  1. UNKNOWN MEDICATION [Concomitant]
     Indication: BREAKTHROUGH PAIN
     Route: 048
     Dates: start: 20010101
  2. DURAGESIC-100 [Suspect]
     Route: 062
     Dates: start: 20010101, end: 20010101
  3. DURAGESIC-100 [Suspect]
     Route: 062
     Dates: start: 20080101, end: 20080101
  4. DURAGESIC-100 [Suspect]
     Indication: PAIN
     Route: 062
     Dates: start: 20010101, end: 20010101
  5. XANAX [Concomitant]
     Indication: ANXIETY
     Route: 048

REACTIONS (7)
  - DRUG INEFFECTIVE [None]
  - HYPOTHYROIDISM [None]
  - FATIGUE [None]
  - DRUG EFFECT INCREASED [None]
  - SEDATION [None]
  - THERAPEUTIC RESPONSE DECREASED [None]
  - HORMONE REPLACEMENT THERAPY [None]
